FAERS Safety Report 13450601 (Version 1)
Quarter: 2017Q2

REPORT INFORMATION
  Report Type: Spontaneous
  Country: US (occurrence: US)
  Receive Date: 20170417
  Receipt Date: 20170417
  Transmission Date: 20170830
  Serious: Yes (Hospitalization)
  Sender: FDA-Public Use
  Company Number: None

PATIENT
  Age: 85 Year
  Sex: Female
  Weight: 81.2 kg

DRUGS (16)
  1. ERLOTINIB 100 MG TABLET GENENTECH, INC [Suspect]
     Active Substance: ERLOTINIB
     Dosage: THERAPY DATES - CURRENT DISPENSE 23/03/17
     Route: 048
     Dates: start: 20160121
  2. SOLIFENACIN [Concomitant]
     Active Substance: SOLIFENACIN
  3. TIOTROPIUM [Concomitant]
     Active Substance: TIOTROPIUM
  4. OMEGA 3 FATTY ACIDS [Concomitant]
     Active Substance: OMEGA-3 FATTY ACIDS
  5. SERTRALINE [Concomitant]
     Active Substance: SERTRALINE HYDROCHLORIDE
  6. RESTASIS [Concomitant]
     Active Substance: CYCLOSPORINE
  7. TOBRADEX [Concomitant]
     Active Substance: DEXAMETHASONE\TOBRAMYCIN
  8. ACETYLSALICYLIC ACID [Concomitant]
     Active Substance: ASPIRIN
  9. BIDESONIDE-FORMOTEROL [Concomitant]
  10. METFORMIN [Concomitant]
     Active Substance: METFORMIN HYDROCHLORIDE
  11. LISINOPRIL. [Concomitant]
     Active Substance: LISINOPRIL
  12. ATENOLOL. [Concomitant]
     Active Substance: ATENOLOL
  13. MULTIVITAMINS [Concomitant]
     Active Substance: VITAMINS
  14. LOPERAMIDE [Concomitant]
     Active Substance: LOPERAMIDE
  15. OMEPRAZOLE. [Concomitant]
     Active Substance: OMEPRAZOLE
  16. SIMVASTATIN. [Concomitant]
     Active Substance: SIMVASTATIN

REACTIONS (9)
  - Left ventricular failure [None]
  - Syncope [None]
  - Pulmonary mass [None]
  - Pulmonary congestion [None]
  - Cardiomegaly [None]
  - Hypophagia [None]
  - Pleural effusion [None]
  - Lung consolidation [None]
  - Dizziness [None]

NARRATIVE: CASE EVENT DATE: 20170404
